FAERS Safety Report 10530902 (Version 1)
Quarter: 2014Q4

REPORT INFORMATION
  Report Type: Report from Study
  Country: US (occurrence: US)
  Receive Date: 20141021
  Receipt Date: 20141021
  Transmission Date: 20150528
  Serious: Yes (Hospitalization, Other)
  Sender: FDA-Public Use
  Company Number: US-GLAXOSMITHKLINE-US2014GSK004499

PATIENT
  Age: 59 Year
  Sex: Female

DRUGS (14)
  1. CISPLATIN. [Suspect]
     Active Substance: CISPLATIN
     Indication: HEAD AND NECK CANCER
     Dosage: 100 MG/M2, CYC
     Route: 042
     Dates: start: 20140917
  2. OXYCODONE [Concomitant]
     Active Substance: OXYCODONE
     Indication: PAIN
     Route: 048
  3. OXYCODONE [Concomitant]
     Active Substance: OXYCODONE
     Indication: PAIN
     Dosage: 30 MG, BID
  4. RADIATION THERAPY [Suspect]
     Active Substance: RADIATION THERAPY
     Indication: HEAD AND NECK CANCER
     Dosage: UNK, QD
     Dates: start: 20140917
  5. ONDANSETRON [Concomitant]
     Active Substance: ONDANSETRON
     Indication: NAUSEA
     Dosage: 8 MG, TID
     Route: 048
  6. MAGIC MOUTHWASH [Concomitant]
     Active Substance: DIPHENHYDRAMINE HYDROCHLORIDE\LIDOCAINE HYDROCHLORIDE\NYSTATIN
     Indication: PAIN
     Dosage: 30 ML, 6D
     Route: 048
  7. LORAZEPAM. [Concomitant]
     Active Substance: LORAZEPAM
     Indication: VOMITING
  8. TYKERB [Suspect]
     Active Substance: LAPATINIB DITOSYLATE
     Indication: HEAD AND NECK CANCER
     Dosage: 1500 MG, QD
     Route: 048
     Dates: start: 20140910
  9. COMPAZINE [Concomitant]
     Active Substance: PROCHLORPERAZINE MALEATE
     Indication: NAUSEA
     Dosage: 10 MG, QID
     Route: 048
  10. CLINDAMYCIN [Concomitant]
     Active Substance: CLINDAMYCIN\CLINDAMYCIN PHOSPHATE
     Indication: RASH
     Dosage: 1 %, BID
  11. LOPERAMIDE [Concomitant]
     Active Substance: LOPERAMIDE
     Indication: DIARRHOEA
     Dosage: 2 MG, UNK
  12. BIOTENE MOUTHWASH (2013 FORMULATION) [Concomitant]
     Indication: DRY MOUTH
     Dosage: UNK, QID
  13. LORAZEPAM. [Concomitant]
     Active Substance: LORAZEPAM
     Indication: NAUSEA
  14. SENNA [Concomitant]
     Active Substance: SENNA LEAF\SENNOSIDES\SENNOSIDES A AND B
     Indication: CONSTIPATION
     Dosage: UNK, BID

REACTIONS (6)
  - Dehydration [Unknown]
  - Rash [Unknown]
  - Diarrhoea [Unknown]
  - Nausea [Recovered/Resolved]
  - Decreased appetite [Unknown]
  - Tumour pain [Recovering/Resolving]

NARRATIVE: CASE EVENT DATE: 20140912
